FAERS Safety Report 5103201-2 (Version None)
Quarter: 2006Q3

REPORT INFORMATION
  Report Type: 
  Country: None (occurrence: None)
  Receive Date: 20060912
  Receipt Date: 20060912
  Transmission Date: 20061208
  Serious: Yes (Life-Threatening, Hospitalization, Disabling, Other)
  Sender: FDA-Public Use
  Company Number: None

PATIENT
  Age: 68 Year
  Sex: Female
  Weight: 124.2856 kg

DRUGS (1)
  1. ALLOPURINOL [Suspect]
     Dosage: 30
     Dates: start: 20050701

REACTIONS (21)
  - ABASIA [None]
  - BLISTER [None]
  - DIABETES MELLITUS [None]
  - DYSPHAGIA [None]
  - OEDEMA MOUTH [None]
  - OEDEMA PERIPHERAL [None]
  - ORAL DISCOMFORT [None]
  - ORAL INTAKE REDUCED [None]
  - ORAL MUCOSAL EXFOLIATION [None]
  - ORAL PAIN [None]
  - PAIN [None]
  - PAIN IN EXTREMITY [None]
  - PAIN OF SKIN [None]
  - PHARYNGEAL OEDEMA [None]
  - PYREXIA [None]
  - SKIN BURNING SENSATION [None]
  - SKIN DISCOLOURATION [None]
  - SKIN EXFOLIATION [None]
  - SKIN ULCER [None]
  - SPEECH DISORDER [None]
  - STOMATITIS [None]
